FAERS Safety Report 5968290-1 (Version None)
Quarter: 2008Q4

REPORT INFORMATION
  Report Type: 
  Country: None (occurrence: None)
  Receive Date: 20081126
  Receipt Date: 20081119
  Transmission Date: 20090506
  Serious: Yes (Hospitalization)
  Sender: FDA-Public Use
  Company Number: US-ASTRAZENECA-2008AC03023

PATIENT
  Age: 56 Year
  Sex: Male

DRUGS (5)
  1. QUETIAPINE FUMARATE [Suspect]
     Dosage: UNKNOWN QUANTITY
     Route: 048
  2. METHADONE HCL [Suspect]
     Indication: DRUG ABUSER
     Dosage: NORMAL ADMINISTRATION FOR INTRAVENOUS DRUG ABUSE
     Route: 048
  3. METHADONE HCL [Suspect]
     Dosage: SUICIDE ATTEMPT
     Route: 048
  4. PAROXETINE HCL [Suspect]
     Indication: DEPRESSION
  5. INSULIN [Concomitant]
     Indication: TYPE 2 DIABETES MELLITUS

REACTIONS (6)
  - HYPERVENTILATION [None]
  - METABOLIC ACIDOSIS [None]
  - METABOLIC ALKALOSIS [None]
  - OVERDOSE [None]
  - RESPIRATORY ALKALOSIS [None]
  - SUICIDE ATTEMPT [None]
